FAERS Safety Report 7921442-3 (Version None)
Quarter: 2011Q4

REPORT INFORMATION
  Report Type: 
  Country: None (occurrence: None)
  Receive Date: 20111117
  Receipt Date: 20101130
  Transmission Date: 20120403
  Serious: No
  Sender: FDA-Public Use
  Company Number: US-MYLANLABS-2010S1022011

PATIENT
  Age: 70 Year
  Sex: Male

DRUGS (4)
  1. PLAVIX [Concomitant]
  2. DOXAZOSIN MESYLATE [Suspect]
     Indication: BLOOD PRESSURE
     Route: 048
     Dates: start: 20100801
  3. SIMVASTATIN [Concomitant]
  4. NICARDIPINE HYDROCHLORIDE [Suspect]
     Indication: BLOOD PRESSURE
     Route: 048
     Dates: start: 20100801

REACTIONS (3)
  - VISION BLURRED [None]
  - PHOTOPHOBIA [None]
  - GLARE [None]
